FAERS Safety Report 13640126 (Version 1)
Quarter: 2017Q2

REPORT INFORMATION
  Report Type: Spontaneous
  Country: US (occurrence: US)
  Receive Date: 20170609
  Receipt Date: 20170609
  Transmission Date: 20170830
  Serious: No
  Sender: FDA-Public Use
  Company Number: US-ROCHE-1464537

PATIENT
  Sex: Female

DRUGS (4)
  1. KLONOPIN [Suspect]
     Active Substance: CLONAZEPAM
     Indication: PANIC ATTACK
  2. CELEXA [Concomitant]
     Active Substance: CITALOPRAM HYDROBROMIDE
     Dosage: IN THE MORNING
     Route: 065
     Dates: start: 2004
  3. KLONOPIN [Suspect]
     Active Substance: CLONAZEPAM
     Indication: ANXIETY
     Dosage: 4 TABLETS A DAY, USUALLY IN THE EVENING
     Route: 065
     Dates: start: 2004
  4. SONATA (UNITED STATES) [Concomitant]
     Indication: INSOMNIA
     Dosage: AS REQUIRED
     Route: 065

REACTIONS (3)
  - Exfoliation glaucoma [Unknown]
  - Blindness [Unknown]
  - Drug ineffective [Unknown]
